FAERS Safety Report 9690393 (Version 2)
Quarter: 2014Q1

REPORT INFORMATION
  Report Type: Spontaneous
  Country: JP (occurrence: JP)
  Receive Date: 20131115
  Receipt Date: 20140121
  Transmission Date: 20141002
  Serious: Yes (Death)
  Sender: FDA-Public Use
  Company Number: JP-SA-2013SA115210

PATIENT
  Age: 68 Year
  Sex: Male
  Weight: 48 kg

DRUGS (22)
  1. ELPLAT [Suspect]
     Indication: COLON CANCER
     Dosage: I.V. INFUSION SOLUTION INJECTION
     Route: 041
     Dates: start: 20131023, end: 20131023
  2. XELODA [Suspect]
     Indication: COLON CANCER
     Route: 048
     Dates: start: 20131023, end: 20131029
  3. AVASTIN [Suspect]
     Indication: COLON CANCER
     Dosage: 380 MG/BODY
     Route: 041
     Dates: start: 20131023, end: 20131023
  4. KYTRIL [Concomitant]
     Dates: start: 20131023, end: 20131023
  5. DECADRON [Concomitant]
     Dates: start: 20131023, end: 20131023
  6. EMEND [Concomitant]
     Dates: start: 20131023, end: 20131025
  7. NASEA [Concomitant]
     Dates: start: 20131024, end: 20131025
  8. PRIMPERAN [Concomitant]
     Dates: start: 20131023, end: 20131023
  9. LOPEMIN [Concomitant]
     Dates: start: 200501
  10. LEUCON [Concomitant]
     Dates: start: 200609
  11. PROTECADIN [Concomitant]
     Dates: start: 200602
  12. CASODEX [Concomitant]
     Dates: start: 200909
  13. URSO [Concomitant]
     Dates: start: 20130222
  14. TRAVATAN [Concomitant]
     Dates: start: 201309
  15. LOXONIN [Concomitant]
     Dates: start: 20131028, end: 20131028
  16. AMINO ACIDS [Concomitant]
     Dates: start: 20131029, end: 20131030
  17. SULFAMETHOXAZOLE/TRIMETHOPRIM [Concomitant]
     Dates: start: 20131029, end: 20131030
  18. CERCINE [Concomitant]
     Dates: start: 20131030, end: 20131030
  19. BOSMIN [Concomitant]
     Dates: start: 20131030, end: 20131030
  20. PREDOPA [Concomitant]
     Dates: start: 20131030, end: 20131030
  21. HESPANDER [Concomitant]
     Dates: start: 20131030, end: 20131030
  22. NORADRENALINE [Concomitant]
     Dates: start: 20131030, end: 20131030

REACTIONS (1)
  - Hyperammonaemia [Fatal]
